FAERS Safety Report 19226593 (Version 1)
Quarter: 2021Q2

REPORT INFORMATION
  Report Type: Report from Study
  Country: FR (occurrence: FR)
  Receive Date: 20210505
  Receipt Date: 20210505
  Transmission Date: 20210717
  Serious: Yes (Hospitalization)
  Sender: FDA-Public Use
  Company Number: FR-JNJFOC-20210457903

PATIENT
  Age: 78 Year
  Sex: Male
  Weight: 85 kg

DRUGS (8)
  1. AMIODARONE [Concomitant]
     Active Substance: AMIODARONE
     Dosage: 200 MG, QD
  2. RIVAROXABAN [Suspect]
     Active Substance: RIVAROXABAN
     Indication: ATRIAL FIBRILLATION
     Dosage: DAILY DOSE 15 MG
     Route: 048
     Dates: start: 20200106, end: 20210220
  3. RIVAROXABAN [Suspect]
     Active Substance: RIVAROXABAN
     Dosage: DAILY DOSE 15 MG
     Route: 048
     Dates: start: 20210301
  4. ENTRESTO [Concomitant]
     Active Substance: SACUBITRIL\VALSARTAN
     Indication: HYPERTENSION
     Dosage: 24/26 MG, BID
     Dates: start: 20200426
  5. BISOPROLOL [Concomitant]
     Active Substance: BISOPROLOL
     Indication: HYPERTENSION
     Dosage: 10 MG, QD
  6. RIVAROXABAN [Suspect]
     Active Substance: RIVAROXABAN
     Dosage: DAILY DOSE 15 MG
     Route: 048
     Dates: start: 20210227, end: 20210228
  7. ENTRESTO [Concomitant]
     Active Substance: SACUBITRIL\VALSARTAN
     Indication: HYPERTENSION
     Dosage: 26 MG, BID
  8. FUROSEMIDE. [Concomitant]
     Active Substance: FUROSEMIDE
     Indication: CHRONIC KIDNEY DISEASE
     Dosage: 60 MG, QD
     Route: 048

REACTIONS (2)
  - Bladder neoplasm [Recovering/Resolving]
  - Dysuria [Recovered/Resolved]

NARRATIVE: CASE EVENT DATE: 20210225
